FAERS Safety Report 20461483 (Version 1)
Quarter: 2022Q1

REPORT INFORMATION
  Report Type: Spontaneous
  Country: BR (occurrence: BR)
  Receive Date: 20220211
  Receipt Date: 20220211
  Transmission Date: 20220423
  Serious: Yes (Other)
  Sender: FDA-Public Use
  Company Number: BR-ELI_LILLY_AND_COMPANY-BR202202001647

PATIENT
  Sex: Female

DRUGS (5)
  1. DULOXETINE HYDROCHLORIDE [Suspect]
     Active Substance: DULOXETINE HYDROCHLORIDE
     Indication: Product used for unknown indication
     Dosage: UNK, UNKNOWN
     Route: 065
     Dates: start: 20220106
  2. ZOLPIDEM [Suspect]
     Active Substance: ZOLPIDEM TARTRATE
     Indication: Product used for unknown indication
     Dosage: UNK, UNKNOWN
     Route: 065
     Dates: start: 20220106
  3. COMIRNATY [Suspect]
     Active Substance: TOZINAMERAN
     Indication: Product used for unknown indication
     Dosage: 225 G, UNKNOWN
     Route: 065
     Dates: start: 20210517
  4. COMIRNATY [Suspect]
     Active Substance: TOZINAMERAN
     Dosage: 225 G, UNKNOWN
     Route: 065
     Dates: start: 20210809
  5. COMIRNATY [Suspect]
     Active Substance: TOZINAMERAN
     Dosage: 225 G, UNKNOWN
     Route: 065
     Dates: start: 20220106

REACTIONS (14)
  - Schizophrenia [Unknown]
  - Panic disorder [Unknown]
  - Poisoning [Unknown]
  - Electric shock sensation [Unknown]
  - Heart rate irregular [Unknown]
  - Erythema [Unknown]
  - Burning sensation [Unknown]
  - Lethargy [Unknown]
  - Nausea [Unknown]
  - Vomiting [Unknown]
  - Paraesthesia [Unknown]
  - Anxiety [Unknown]
  - Fatigue [Unknown]
  - Abdominal discomfort [Unknown]
